FAERS Safety Report 6996896-X (Version None)
Quarter: 2010Q3

REPORT INFORMATION
  Report Type: 
  Country: None (occurrence: None)
  Receive Date: 20100918
  Receipt Date: 20090727
  Transmission Date: 20110219
  Serious: No
  Sender: FDA-Public Use
  Company Number: US-WYE-H10340709

PATIENT
  Sex: Female
  Weight: 81.72 kg

DRUGS (6)
  1. EFFEXOR XR [Suspect]
     Indication: GENERALISED ANXIETY DISORDER
     Dosage: UNKNOWN DOSE
     Dates: start: 20040101
  2. EFFEXOR XR [Suspect]
     Route: 048
     Dates: start: 20081201, end: 20090501
  3. EFFEXOR XR [Suspect]
     Dosage: DECREASED FROM 150 MG/DAY TO 137.5 MG/DAY, 75 MG/DAY, 37.5 MG/DAY TO 18.75 MG/DAY
     Route: 048
     Dates: start: 20090501, end: 20090723
  4. LISINOPRIL [Concomitant]
  5. TRIAMTERENE [Concomitant]
  6. TOPROL-XL [Concomitant]

REACTIONS (11)
  - CONDITION AGGRAVATED [None]
  - DRUG WITHDRAWAL SYNDROME [None]
  - FEELING JITTERY [None]
  - HEAD DISCOMFORT [None]
  - INSOMNIA [None]
  - NAUSEA [None]
  - PARAESTHESIA [None]
  - TENSION [None]
  - TINNITUS [None]
  - TREMOR [None]
  - UNEVALUABLE EVENT [None]
